FAERS Safety Report 9496359 (Version 1)
Quarter: 2013Q3

REPORT INFORMATION
  Report Type: Spontaneous
  Country: US (occurrence: US)
  Receive Date: 20130904
  Receipt Date: 20130904
  Transmission Date: 20140515
  Serious: Yes (Other)
  Sender: FDA-Public Use
  Company Number: US-JNJFOC-20130815264

PATIENT
  Age: 10 Year
  Sex: Female
  Weight: 36.74 kg

DRUGS (3)
  1. CONCERTA [Suspect]
     Indication: ATTENTION DEFICIT/HYPERACTIVITY DISORDER
     Route: 048
     Dates: start: 201308
  2. METHYLPHENIDATE HYDROCHLORIDE (WATSON) [Suspect]
     Indication: ATTENTION DEFICIT/HYPERACTIVITY DISORDER
     Route: 048
     Dates: end: 201308
  3. LORATADINE [Concomitant]
     Indication: HYPERSENSITIVITY
     Route: 065
     Dates: start: 2013

REACTIONS (5)
  - Foot fracture [Not Recovered/Not Resolved]
  - Drug dose omission [Unknown]
  - Pain [Recovering/Resolving]
  - Swelling [Unknown]
  - Growth retardation [Unknown]
